FAERS Safety Report 9763718 (Version 2)
Quarter: 2013Q4

REPORT INFORMATION
  Report Type: Spontaneous
  Country: US (occurrence: US)
  Receive Date: 20131216
  Receipt Date: 20131224
  Transmission Date: 20140711
  Serious: No
  Sender: FDA-Public Use
  Company Number: US-BIOGENIDEC-2013BI114284

PATIENT
  Age: 68 Year
  Sex: Female

DRUGS (3)
  1. TECFIDERA [Suspect]
     Indication: MULTIPLE SCLEROSIS
     Route: 048
     Dates: start: 20130922, end: 20130928
  2. TECFIDERA [Suspect]
     Indication: MULTIPLE SCLEROSIS
     Dates: start: 201311
  3. FOSAMAX [Concomitant]

REACTIONS (3)
  - Syncope [Recovered/Resolved]
  - Fall [Recovered/Resolved]
  - Adverse drug reaction [Recovered/Resolved]
